FAERS Safety Report 20954825 (Version 1)
Quarter: 2022Q2

REPORT INFORMATION
  Report Type: Spontaneous
  Country: US (occurrence: US)
  Receive Date: 20220614
  Receipt Date: 20220614
  Transmission Date: 20220721
  Serious: Yes (Death, Other)
  Sender: FDA-Public Use
  Company Number: US-AMGEN-USASP2022098197

PATIENT
  Sex: Female

DRUGS (5)
  1. FILGRASTIM [Suspect]
     Active Substance: FILGRASTIM
     Indication: Prophylaxis
     Dosage: DAYS 4-6 OF EACH 3-WEEK CYCLE FOR 6-10 CYCLES
     Route: 065
  2. PEGFILGRASTIM [Suspect]
     Active Substance: PEGFILGRASTIM
     Indication: Prophylaxis
     Dosage: DAYS 4-6 OF EACH 3-WEEK CYCLE FOR 6-10 CYCLES
     Route: 065
  3. IFOSFAMIDE [Concomitant]
     Active Substance: IFOSFAMIDE
     Dosage: 1.6 GRAM, IV DAILY DAYS 1-3
     Route: 042
  4. MESNA [Concomitant]
     Active Substance: MESNA
     Dosage: IV AND/OR ORAL
     Route: 042
  5. PACLITAXEL [Concomitant]
     Active Substance: PACLITAXEL
     Dosage: 135 MILLIGRAM/SQ. METER, BY 3-HOUR INFUSION ON ONCE DAY 1

REACTIONS (32)
  - Uterine cancer [Fatal]
  - Ovarian cancer [Fatal]
  - Neurotoxicity [Unknown]
  - Urogenital haemorrhage [Unknown]
  - Haemorrhage [Unknown]
  - Haematotoxicity [Unknown]
  - Multiple organ dysfunction syndrome [Fatal]
  - Sepsis [Fatal]
  - Myelodysplastic syndrome [Fatal]
  - Nervous system disorder [Unknown]
  - Skin hyperpigmentation [Unknown]
  - Proteinuria [Unknown]
  - Urogenital disorder [Unknown]
  - Blood disorder [Unknown]
  - Bone marrow disorder [Unknown]
  - White blood cell count abnormal [Unknown]
  - Platelet count abnormal [Unknown]
  - Neutrophil count abnormal [Unknown]
  - Blood alkaline phosphatase abnormal [Unknown]
  - Confusional state [Unknown]
  - Bone pain [Unknown]
  - Adverse event [Unknown]
  - Fatigue [Unknown]
  - Cardiac disorder [Unknown]
  - Gastrointestinal disorder [Unknown]
  - Infection [Unknown]
  - Musculoskeletal disorder [Unknown]
  - Metabolic disorder [Unknown]
  - Lung disorder [Unknown]
  - Pain [Unknown]
  - Ill-defined disorder [Unknown]
  - Hypomagnesaemia [Unknown]
